FAERS Safety Report 7672799-2 (Version None)
Quarter: 2011Q3

REPORT INFORMATION
  Report Type: 
  Country: None (occurrence: None)
  Receive Date: 20110809
  Receipt Date: 20110803
  Transmission Date: 20111222
  Serious: Yes (Hospitalization)
  Sender: FDA-Public Use
  Company Number: US-ABBOTT-11P-163-0843785-00

PATIENT
  Sex: Female
  Weight: 68.1 kg

DRUGS (4)
  1. IMITREX [Concomitant]
     Indication: MIGRAINE
  2. HUMIRA [Suspect]
     Indication: CROHN'S DISEASE
     Dates: start: 20110101
  3. DEPO-PROVERA [Suspect]
     Indication: DYSMENORRHOEA
     Dates: start: 20101001, end: 20101001
  4. NAPROSYN [Concomitant]
     Indication: MIGRAINE

REACTIONS (2)
  - UTERINE DISORDER [None]
  - MENORRHAGIA [None]
